FAERS Safety Report 14977237 (Version 1)
Quarter: 2018Q2

REPORT INFORMATION
  Report Type: Report from Study
  Country: None (occurrence: US)
  Receive Date: 20180606
  Receipt Date: 20180606
  Transmission Date: 20180711
  Serious: Yes (Hospitalization)
  Sender: FDA-Public Use
  Company Number: US-ABBVIE-18K-163-2357776-00

PATIENT
  Sex: Female

DRUGS (1)
  1. HUMIRA [Suspect]
     Active Substance: ADALIMUMAB
     Indication: RHEUMATOID ARTHRITIS
     Route: 058
     Dates: start: 201711

REACTIONS (7)
  - Oedema [Unknown]
  - Depression [Not Recovered/Not Resolved]
  - Pericardial effusion [Unknown]
  - Gait disturbance [Not Recovered/Not Resolved]
  - Atrial fibrillation [Not Recovered/Not Resolved]
  - Impaired self-care [Not Recovered/Not Resolved]
  - Cardiac ablation [Unknown]
